FAERS Safety Report 7226110-1 (Version None)
Quarter: 2011Q1

REPORT INFORMATION
  Report Type: 
  Country: None (occurrence: None)
  Receive Date: 20110113
  Receipt Date: 20110106
  Transmission Date: 20110831
  Serious: Yes (Other)
  Sender: FDA-Public Use
  Company Number: DE-BAYER-201025405GPV

PATIENT
  Sex: Female
  Weight: 60 kg

DRUGS (1)
  1. CIPRO [Suspect]
     Indication: TOOTH DISORDER
     Dosage: AS USED DOSE: UNK
     Route: 048
     Dates: start: 20100430, end: 20100505

REACTIONS (2)
  - NO ADVERSE EVENT [None]
  - CAESAREAN SECTION [None]
